FAERS Safety Report 4768207-1 (Version None)
Quarter: 2005Q3

REPORT INFORMATION
  Report Type: 
  Country: None (occurrence: None)
  Receive Date: 20050914
  Receipt Date: 20050706
  Transmission Date: 20060218
  Serious: Yes (Death, Other)
  Sender: FDA-Public Use
  Company Number: HK-ABBOTT-05P-075-0305527-00

PATIENT
  Age: 92 Year
  Sex: Male

DRUGS (7)
  1. CLARITHROMYCIN [Suspect]
     Indication: PNEUMONIA
     Route: 048
     Dates: start: 20030701, end: 20030708
  2. COLCHICINE [Interacting]
     Indication: GOUT
     Route: 048
     Dates: start: 20030701, end: 20030704
  3. PIPERCILLIN-TAZOBACTAM [Concomitant]
     Indication: PNEUMONIA
     Dates: start: 20030701, end: 20030709
  4. ADALAT [Concomitant]
     Indication: HYPERTENSION
  5. ISOSORBIDE DINITRATE SR [Concomitant]
     Indication: MYOCARDIAL ISCHAEMIA
  6. MULTI-VITAMINS [Concomitant]
     Indication: DRUG USE FOR UNKNOWN INDICATION
  7. DOLOGESICS [Concomitant]
     Indication: BACK PAIN

REACTIONS (6)
  - ABDOMINAL PAIN [None]
  - DIARRHOEA [None]
  - DRUG INTERACTION [None]
  - DRUG TOXICITY [None]
  - DYSPNOEA [None]
  - GOUT [None]
